FAERS Safety Report 5626205-X (Version None)
Quarter: 2008Q1

REPORT INFORMATION
  Report Type: 
  Country: None (occurrence: None)
  Receive Date: 20080214
  Receipt Date: 20080211
  Transmission Date: 20080703
  Serious: Yes (Hospitalization)
  Sender: FDA-Public Use
  Company Number: A0708690A

PATIENT
  Age: 35 Year
  Sex: Male

DRUGS (14)
  1. ADVAIR DISKUS 100/50 [Suspect]
     Indication: ASTHMA
     Dosage: 1PUFF PER DAY
     Route: 055
  2. HYDRALAZINE HCL [Concomitant]
  3. ALTACE [Concomitant]
  4. NORVASC [Concomitant]
  5. BLOOD PRESSURE MEDICATION [Concomitant]
  6. WATER PILL [Concomitant]
  7. POTASSIUM CHLORIDE [Concomitant]
  8. XOPENEX [Concomitant]
  9. PERCOCET [Concomitant]
  10. OXYCONTIN [Concomitant]
  11. OXYGEN [Concomitant]
  12. ZITHROMAX [Concomitant]
  13. XANAX [Concomitant]
  14. FLU SHOT [Concomitant]

REACTIONS (20)
  - ANXIETY [None]
  - CHEST DISCOMFORT [None]
  - CHEST PAIN [None]
  - DYSPNOEA [None]
  - FALL [None]
  - FATIGUE [None]
  - FEELING ABNORMAL [None]
  - HEADACHE [None]
  - HYPOAESTHESIA [None]
  - INTERVERTEBRAL DISC PROTRUSION [None]
  - JOINT INJURY [None]
  - LIMB INJURY [None]
  - LUNG INFECTION [None]
  - OXYGEN SATURATION DECREASED [None]
  - PNEUMONIA [None]
  - PRODUCTIVE COUGH [None]
  - RESPIRATORY DISORDER [None]
  - SUFFOCATION FEELING [None]
  - WEIGHT INCREASED [None]
  - WHEEZING [None]
